FAERS Safety Report 11089341 (Version 1)
Quarter: 2015Q2

REPORT INFORMATION
  Report Type: Spontaneous
  Country: US (occurrence: US)
  Receive Date: 20150505
  Receipt Date: 20150505
  Transmission Date: 20150821
  Serious: Yes (Hospitalization)
  Sender: FDA-Public Use
  Company Number: US-BEH-2015050700

PATIENT
  Age: 50 Year
  Sex: Female
  Weight: 60.8 kg

DRUGS (39)
  1. TRAMADOL HCL [Concomitant]
     Active Substance: TRAMADOL HYDROCHLORIDE
  2. ALPHA LIPOIC ACID [Concomitant]
     Active Substance: .ALPHA.-LIPOIC ACID
  3. METHOCARBAMOL. [Concomitant]
     Active Substance: METHOCARBAMOL
  4. LACTULOSE. [Concomitant]
     Active Substance: LACTULOSE
  5. FLOVENT HFA [Concomitant]
     Active Substance: FLUTICASONE PROPIONATE
     Route: 055
  6. AZO STANDARD [Concomitant]
     Active Substance: PHENAZOPYRIDINE HYDROCHLORIDE
  7. ESTROVEN ENERGY [Concomitant]
  8. NAPROXEN. [Concomitant]
     Active Substance: NAPROXEN
  9. TRAZODONE [Concomitant]
     Active Substance: TRAZODONE HYDROCHLORIDE
  10. BACLOFEN. [Concomitant]
     Active Substance: BACLOFEN
  11. ALBUTEROL. [Concomitant]
     Active Substance: ALBUTEROL
     Route: 055
  12. EPIPEN [Concomitant]
     Active Substance: EPINEPHRINE
  13. GABAPENTIN. [Concomitant]
     Active Substance: GABAPENTIN
  14. NAPROXEN. [Concomitant]
     Active Substance: NAPROXEN
  15. ZITHROMAX [Concomitant]
     Active Substance: AZITHROMYCIN DIHYDRATE
  16. LIDODERM [Concomitant]
     Active Substance: LIDOCAINE
  17. PREDNISONE. [Concomitant]
     Active Substance: PREDNISONE
  18. PROMETHAZINE [Concomitant]
     Active Substance: PROMETHAZINE\PROMETHAZINE HYDROCHLORIDE
  19. SINGULAIR [Concomitant]
     Active Substance: MONTELUKAST SODIUM
  20. DIPHENOXYLATE ATROPINE [Concomitant]
  21. BETAMETHASONE DP [Concomitant]
  22. OXYCODONE HCL [Concomitant]
     Active Substance: OXYCODONE HYDROCHLORIDE
  23. HERBAL NOS [Concomitant]
     Active Substance: HERBALS
  24. OMEGA 3-6-9 [Concomitant]
  25. LMX [Concomitant]
     Active Substance: LIDOCAINE
  26. LEVAQUIN [Concomitant]
     Active Substance: LEVOFLOXACIN
  27. SYMBICORT [Concomitant]
     Active Substance: BUDESONIDE\FORMOTEROL FUMARATE DIHYDRATE
     Dosage: 160/4.5 MCG
     Route: 055
  28. CYMBALTA [Concomitant]
     Active Substance: DULOXETINE HYDROCHLORIDE
  29. MS CONTIN CR [Concomitant]
     Active Substance: MORPHINE SULFATE
  30. PROAIR HFA [Concomitant]
     Active Substance: ALBUTEROL SULFATE
  31. DIPHENHYDRAMINE [Concomitant]
     Active Substance: DIPHENHYDRAMINE
  32. HEPARIN [Concomitant]
     Active Substance: HEPARIN SODIUM
  33. NORMAL SALINE [Concomitant]
     Active Substance: SODIUM CHLORIDE
  34. GINKO BILOBA [Concomitant]
     Active Substance: GINKGO
  35. MUCINEX DM ER [Concomitant]
  36. OPANA ER [Concomitant]
     Active Substance: OXYMORPHONE HYDROCHLORIDE
  37. ZEMAIRA [Suspect]
     Active Substance: .ALPHA.1-PROTEINASE INHIBITOR HUMAN
     Indication: ALPHA-1 ANTI-TRYPSIN DEFICIENCY
     Route: 042
     Dates: start: 20150423
  38. OXYGEN. [Concomitant]
     Active Substance: OXYGEN
  39. FLAGYL [Concomitant]
     Active Substance: METRONIDAZOLE\METRONIDAZOLE HYDROCHLORIDE

REACTIONS (1)
  - Respiratory distress [Unknown]

NARRATIVE: CASE EVENT DATE: 20150423
